FAERS Safety Report 22295201 (Version 1)
Quarter: 2023Q2

REPORT INFORMATION
  Report Type: Spontaneous
  Country: US (occurrence: None)
  Receive Date: 20230506
  Receipt Date: 20230506
  Transmission Date: 20230721
  Serious: Yes (Other)
  Sender: FDA-Public Use
  Company Number: None

PATIENT
  Age: 41 Year
  Sex: Female
  Weight: 73.8 kg

DRUGS (7)
  1. OFLOXACIN [Suspect]
     Active Substance: OFLOXACIN
     Indication: Conjunctivitis bacterial
     Dosage: OTHER QUANTITY : 1 DROP(S);?FREQUENCY : 4 TIMES A DAY;?
     Route: 047
     Dates: start: 20230219, end: 20230223
  2. POLYTRIM [Suspect]
     Active Substance: POLYMYXIN B SULFATE\TRIMETHOPRIM SULFATE
  3. AUGMENTIN [Suspect]
     Active Substance: AMOXICILLIN\CLAVULANATE POTASSIUM
  4. wellbutrin 300mg xl daily [Concomitant]
  5. citalopram 10mg daily [Concomitant]
  6. slynd 3mg daily [Concomitant]
  7. fish oil 1000mg daily [Concomitant]

REACTIONS (7)
  - Eye infection [None]
  - Vulvovaginal mycotic infection [None]
  - Cellulitis [None]
  - Cellulitis [None]
  - Giant papillary conjunctivitis [None]
  - Conjunctivitis allergic [None]
  - Recalled product administered [None]

NARRATIVE: CASE EVENT DATE: 20230219
